FAERS Safety Report 6130169-2 (Version None)
Quarter: 2009Q1

REPORT INFORMATION
  Report Type: 
  Country: None (occurrence: None)
  Receive Date: 20090324
  Receipt Date: 20090319
  Transmission Date: 20090719
  Serious: Yes (Death, Hospitalization, Other)
  Sender: FDA-Public Use
  Company Number: US-ABBOTT-07P-163-0368966-00

PATIENT
  Age: 49 Year
  Sex: Male

DRUGS (12)
  1. BIAXIN XL [Suspect]
     Indication: DRUG USE FOR UNKNOWN INDICATION
     Route: 048
     Dates: start: 20050412, end: 20050801
  2. LAMISIL [Suspect]
     Indication: DRUG USE FOR UNKNOWN INDICATION
     Route: 048
     Dates: start: 20050120, end: 20050801
  3. NIZORAL [Concomitant]
     Indication: SEBORRHOEA
     Dates: end: 20050801
  4. LOTREL [Concomitant]
     Indication: DRUG USE FOR UNKNOWN INDICATION
     Dates: end: 20050801
  5. KENALOG [Concomitant]
     Indication: DRUG USE FOR UNKNOWN INDICATION
     Route: 030
     Dates: start: 20050412, end: 20050801
  6. DECADRON [Concomitant]
     Indication: DRUG USE FOR UNKNOWN INDICATION
     Route: 030
     Dates: start: 20050412, end: 20050801
  7. ASTELIN [Concomitant]
     Indication: DRUG USE FOR UNKNOWN INDICATION
     Route: 045
     Dates: start: 20050412, end: 20050801
  8. NASONEX [Concomitant]
     Indication: DRUG USE FOR UNKNOWN INDICATION
     Dates: start: 20050412, end: 20050801
  9. ALLEGRA [Concomitant]
     Indication: DRUG USE FOR UNKNOWN INDICATION
     Dates: end: 20050801
  10. FLONASE [Concomitant]
     Indication: DRUG USE FOR UNKNOWN INDICATION
     Dates: end: 20050801
  11. NYSTATIN [Concomitant]
     Indication: DRUG USE FOR UNKNOWN INDICATION
     Dates: end: 20050801
  12. ALBUTEROL [Concomitant]
     Indication: DRUG USE FOR UNKNOWN INDICATION
     Route: 055
     Dates: end: 20050801

REACTIONS (42)
  - ANAEMIA [None]
  - ANOREXIA [None]
  - ANXIETY [None]
  - APPETITE DISORDER [None]
  - BLOOD PRESSURE DECREASED [None]
  - BRONCHITIS CHRONIC [None]
  - CHILLS [None]
  - CHROMATURIA [None]
  - CHRONIC HEPATIC FAILURE [None]
  - CONDITION AGGRAVATED [None]
  - COUGH [None]
  - DEFICIENCY ANAEMIA [None]
  - DRY MOUTH [None]
  - EMOTIONAL DISTRESS [None]
  - FOOD INTOLERANCE [None]
  - GASTROINTESTINAL DISORDER [None]
  - HAEMATOCHEZIA [None]
  - HEPATIC FAILURE [None]
  - HEPATIC PAIN [None]
  - HEPATITIS [None]
  - HICCUPS [None]
  - HYPERBILIRUBINAEMIA [None]
  - HYPERTENSION [None]
  - JAUNDICE [None]
  - LEUKOPLAKIA ORAL [None]
  - LIVER DISORDER [None]
  - LIVER TENDERNESS [None]
  - NASOPHARYNGITIS [None]
  - NAUSEA [None]
  - OROPHARYNGEAL PLAQUE [None]
  - PAIN [None]
  - PHARYNGITIS [None]
  - PHOTOSENSITIVITY REACTION [None]
  - POSTNASAL DRIP [None]
  - PRODUCTIVE COUGH [None]
  - RENAL DISORDER [None]
  - RENAL FAILURE [None]
  - RENAL FAILURE ACUTE [None]
  - SPUTUM DISCOLOURED [None]
  - TONGUE COATED [None]
  - VOMITING [None]
  - WHEEZING [None]
